FAERS Safety Report 18593028 (Version 2)
Quarter: 2021Q4

REPORT INFORMATION
  Report Type: Spontaneous
  Country: CA (occurrence: CA)
  Receive Date: 20201208
  Receipt Date: 20211216
  Transmission Date: 20220303
  Serious: Yes (Other)
  Sender: FDA-Public Use
  Company Number: CA-PFIZER INC-2019393358

PATIENT
  Age: 25 Year
  Sex: Male
  Weight: 79.365 kg

DRUGS (3)
  1. XELJANZ [Suspect]
     Active Substance: TOFACITINIB CITRATE
     Indication: Colitis ulcerative
     Dosage: 10 MG, 2X/DAY
     Route: 048
     Dates: start: 20190601
  2. ASACOL [Concomitant]
     Active Substance: MESALAMINE
     Indication: Colitis
     Dosage: 800 MG, 3X/DAY
     Route: 065
  3. LOPERAMIDE HYDROCHLORIDE [Concomitant]
     Active Substance: LOPERAMIDE HYDROCHLORIDE
     Indication: Colitis
     Dosage: 2.5 MG, AS NEEDED(UP TO 8 TABS MAX A DAY)

REACTIONS (2)
  - Rectal haemorrhage [Unknown]
  - Haematochezia [Unknown]
